FAERS Safety Report 4291412-8 (Version None)
Quarter: 2004Q1

REPORT INFORMATION
  Report Type: 
  Country: None (occurrence: None)
  Receive Date: 20040211
  Receipt Date: 20031110
  Transmission Date: 20041129
  Serious: No
  Sender: FDA-Public Use
  Company Number: US-BRISTOL-MYERS SQUIBB COMPANY-12432043

PATIENT
  Age: 56 Year
  Sex: Female
  Weight: 68 kg

DRUGS (3)
  1. CEFZIL [Suspect]
     Indication: STAPHYLOCOCCAL INFECTION
     Route: 048
     Dates: start: 20031105, end: 20031107
  2. PREVACID [Concomitant]
  3. ZYRTEC [Concomitant]

REACTIONS (1)
  - STAPHYLOCOCCAL INFECTION [None]
